FAERS Safety Report 6731644-X (Version None)
Quarter: 2010Q2

REPORT INFORMATION
  Report Type: 
  Country: None (occurrence: None)
  Receive Date: 20100519
  Receipt Date: 20100504
  Transmission Date: 20101027
  Serious: Yes (Hospitalization)
  Sender: FDA-Public Use
  Company Number: US-BAYER-200840245NA

PATIENT
  Age: 44 Year
  Sex: Female

DRUGS (12)
  1. CAMPATH [Suspect]
     Indication: MULTIPLE SCLEROSIS
     Dosage: TOTAL DAILY DOSE: 12 MG
     Route: 042
     Dates: start: 20031103, end: 20031107
  2. CAMPATH [Suspect]
     Dosage: TOTAL DAILY DOSE: 12 MG
     Route: 042
     Dates: start: 20041103, end: 20041105
  3. CAMPATH [Suspect]
     Dosage: TOTAL DAILY DOSE: 12 MG
     Route: 042
     Dates: start: 20081202, end: 20081204
  4. SOLU-MEDROL [Concomitant]
     Dosage: AS USED: 1 G
     Route: 042
     Dates: start: 20081202, end: 20081204
  5. CYMBALTA [Concomitant]
     Dosage: TOTAL DAILY DOSE: 20 MG
     Dates: start: 20080827
  6. PREVACID [Concomitant]
     Dosage: AS USED: 30 MG
     Dates: start: 20081022
  7. CLARITIN [Concomitant]
     Dosage: TOTAL DAILY DOSE: 10 MG
     Dates: start: 20081201
  8. XANAX [Concomitant]
     Dates: start: 20080802
  9. HYDROXYZINE [Concomitant]
     Indication: PRURITUS
     Dosage: Q 4-6 HRS
  10. CLONAZEPAM [Concomitant]
     Dosage: TOTAL DAILY DOSE: 1 MG
  11. ACETAMINOPHEN [Concomitant]
     Dosage: EVERY 4 HOURS AS NEEDED
  12. LOVENOX [Concomitant]
     Route: 058
     Dates: start: 20081204

REACTIONS (1)
  - ATRIAL FIBRILLATION [None]
